FAERS Safety Report 25237413 (Version 1)
Quarter: 2025Q2

REPORT INFORMATION
  Report Type: Spontaneous
  Country: PK (occurrence: PK)
  Receive Date: 20250425
  Receipt Date: 20250425
  Transmission Date: 20250717
  Serious: Yes (Other)
  Sender: AMGEN
  Company Number: PK-PFIZER INC-2020027941

PATIENT
  Age: 30 Year
  Sex: Male
  Weight: 62 kg

DRUGS (8)
  1. ENBREL [Suspect]
     Active Substance: ETANERCEPT
     Indication: Ankylosing spondylitis
     Dosage: 50 MG, WEEKLY
     Route: 058
  2. ENBREL [Suspect]
     Active Substance: ETANERCEPT
     Indication: Spondyloarthropathy
     Route: 058
  3. ENBREL [Suspect]
     Active Substance: ETANERCEPT
     Indication: Arthritis
     Route: 065
  4. FOLIC ACID [Concomitant]
     Active Substance: FOLIC ACID
     Dosage: 5MG DAILY EXCEPT SUNDAY
  5. FOLIC ACID [Concomitant]
     Active Substance: FOLIC ACID
     Dosage: 2 DF ON EVERY MONDAY
  6. METHOTREXATE [Concomitant]
     Active Substance: METHOTREXATE
     Dosage: TAKE 1 AND HALF , WEEKLY
     Route: 058
  7. CELBEXX [Concomitant]
     Indication: Pain
  8. Ruling [Concomitant]
     Dosage: 20 MG, DAILY

REACTIONS (5)
  - Ankylosing spondylitis [Unknown]
  - Arthralgia [Unknown]
  - Hypotension [Unknown]
  - Pain [Unknown]
  - Off label use [Unknown]

NARRATIVE: CASE EVENT DATE: 20250417
